FAERS Safety Report 8044998-1 (Version None)
Quarter: 2012Q1

REPORT INFORMATION
  Report Type: 
  Country: None (occurrence: None)
  Receive Date: 20120113
  Receipt Date: 20120106
  Transmission Date: 20120608
  Serious: Yes (Hospitalization)
  Sender: FDA-Public Use
  Company Number: PHHO2011BE17338

PATIENT
  Sex: Male
  Weight: 88 kg

DRUGS (8)
  1. ALISKIREN [Suspect]
     Indication: CARDIAC FAILURE
     Dosage: 150 MG, UNK
  2. ENALAPRIL MALEATE [Suspect]
     Indication: CARDIAC FAILURE
     Dosage: 20 MG, UNK
     Route: 048
     Dates: start: 20110910
  3. ALDACTONE [Concomitant]
     Indication: CARDIAC FAILURE
     Dosage: 25 MG/ DAY
     Dates: start: 20110225
  4. BLINDED NO TREATMENT RECEIVED [Suspect]
     Dosage: NO TREATMENT
  5. BLINDED ALISKIREN [Suspect]
     Dosage: NO TREATMENT
  6. NOBITEN [Concomitant]
     Indication: CARDIAC FAILURE
     Dosage: 5 MG/ DAY
     Dates: start: 20110519
  7. ENALAPRIL MALEATE [Suspect]
     Dosage: NO TREATMENT
  8. BUMETANIDE [Concomitant]
     Indication: CARDIAC FAILURE
     Dosage: 2 MG/ DAY
     Dates: start: 20110927

REACTIONS (1)
  - CARDIAC FAILURE [None]
